FAERS Safety Report 8911609 (Version 3)
Quarter: 2016Q1

REPORT INFORMATION
  Report Type: Report from Study
  Country: JP (occurrence: JP)
  Receive Date: 20121116
  Receipt Date: 20160217
  Transmission Date: 20160526
  Serious: Yes (Hospitalization)
  Sender: FDA-Public Use
  Company Number: JP-PFIZER INC-2012284264

PATIENT
  Age: 66 Year
  Sex: Male
  Weight: 51.6 kg

DRUGS (8)
  1. XALKORI [Suspect]
     Active Substance: CRIZOTINIB
     Indication: NON-SMALL CELL LUNG CANCER
     Dosage: 250 MG, 2X/DAY
     Route: 048
     Dates: start: 20121011, end: 20121102
  2. DEPAS [Concomitant]
     Active Substance: ETIZOLAM
     Dosage: 0.5 MG, 3X/DAY
     Route: 048
  3. HYPEN [Concomitant]
     Active Substance: ETODOLAC
     Dosage: 200 MG, 2X/DAY
     Route: 048
  4. POLAPREZINC [Concomitant]
     Active Substance: POLAPREZINC
     Dosage: 75 MG, 2X/DAY
     Route: 048
  5. FOLIAMIN [Concomitant]
     Active Substance: FOLIC ACID
     Dosage: 0.5 MG, 1X/DAY
     Route: 048
     Dates: end: 20121016
  6. AMLODIPINE [Concomitant]
     Active Substance: AMLODIPINE BESYLATE
     Dosage: 5 MG, 1X/DAY
     Route: 048
  7. MAGMITT [Concomitant]
     Active Substance: MAGNESIUM OXIDE
     Dosage: 500 MG, 3X/DAY
     Route: 048
  8. TAKEPRON [Concomitant]
     Active Substance: LANSOPRAZOLE
     Dosage: 30 MG, 1X/DAY
     Route: 048

REACTIONS (1)
  - Interstitial lung disease [Recovered/Resolved]

NARRATIVE: CASE EVENT DATE: 20121102
